FAERS Safety Report 4635495-1 (Version None)
Quarter: 2005Q2

REPORT INFORMATION
  Report Type: 
  Country: None (occurrence: None)
  Receive Date: 20050413
  Receipt Date: 20050330
  Transmission Date: 20051028
  Serious: Yes (Hospitalization)
  Sender: FDA-Public Use
  Company Number: TPA2005A00118

PATIENT
  Age: 68 Year
  Sex: Female
  Weight: 85.7298 kg

DRUGS (3)
  1. ACTOS [Suspect]
     Indication: DIABETES MELLITUS
     Dosage: 30 MG, 1 IN 1 D, PER ORAL
     Route: 048
     Dates: start: 20050114, end: 20050116
  2. GLUCOVANCE [Concomitant]
  3. HYZAAR [Concomitant]

REACTIONS (11)
  - ARTHROPATHY [None]
  - DIABETES MELLITUS INADEQUATE CONTROL [None]
  - HYPERTENSION [None]
  - HYPOAESTHESIA [None]
  - MENTAL DISORDER [None]
  - MYALGIA [None]
  - PAIN [None]
  - PARALYSIS [None]
  - RESPIRATORY RATE INCREASED [None]
  - SPEECH DISORDER [None]
  - TREATMENT NONCOMPLIANCE [None]
